FAERS Safety Report 6303904-8 (Version None)
Quarter: 2009Q3

REPORT INFORMATION
  Report Type: 
  Country: None (occurrence: None)
  Receive Date: 20090810
  Receipt Date: 20090810
  Transmission Date: 20100115
  Serious: Yes (Other)
  Sender: FDA-Public Use
  Company Number: None

PATIENT
  Age: 58 Year
  Sex: Female

DRUGS (2)
  1. ADVAIR DISKUS 250/50 [Suspect]
     Indication: BRONCHITIS
     Dosage: 1 PUFF BY MOUTH TWICE DAILY
     Route: 048
     Dates: start: 20090519, end: 20090724
  2. ADVAIR DISKUS 250/50 [Suspect]
     Indication: NASOPHARYNGITIS
     Dosage: 1 PUFF BY MOUTH TWICE DAILY
     Route: 048
     Dates: start: 20090519, end: 20090724

REACTIONS (5)
  - ABDOMINAL DISTENSION [None]
  - MUSCULOSKELETAL STIFFNESS [None]
  - MYALGIA [None]
  - PARAESTHESIA [None]
  - WEIGHT INCREASED [None]
